FAERS Safety Report 20718985 (Version 1)
Quarter: 2022Q2

REPORT INFORMATION
  Report Type: Spontaneous
  Country: CA (occurrence: None)
  Receive Date: 20220418
  Receipt Date: 20220418
  Transmission Date: 20220721
  Serious: Yes (Other)
  Sender: FDA-Public Use
  Company Number: CA-ROCHE-3073647

PATIENT
  Age: 69 Year
  Sex: Female

DRUGS (2)
  1. RITUXIMAB [Suspect]
     Active Substance: RITUXIMAB
     Indication: Cutaneous vasculitis
     Route: 041
  2. SULFASALAZINE [Concomitant]
     Active Substance: SULFASALAZINE
     Dosage: 1.0 DOSAGE FORM

REACTIONS (5)
  - Inappropriate schedule of product administration [Unknown]
  - Infusion site bruising [Not Recovered/Not Resolved]
  - Off label use [Unknown]
  - Poor venous access [Not Recovered/Not Resolved]
  - Vein rupture [Not Recovered/Not Resolved]
